FAERS Safety Report 7138365-2 (Version None)
Quarter: 2010Q4

REPORT INFORMATION
  Report Type: 
  Country: None (occurrence: None)
  Receive Date: 20101206
  Receipt Date: 20101124
  Transmission Date: 20110411
  Serious: Yes (Disabling, Other)
  Sender: FDA-Public Use
  Company Number: US-ACTELION-A-NJ2010-41789

PATIENT

DRUGS (9)
  1. BOSENTAN TABLET 125 MG US [Suspect]
     Indication: PULMONARY ARTERIAL HYPERTENSION
     Dosage: 125 MG, BID
     Route: 048
     Dates: start: 20100101, end: 20101122
  2. BOSENTAN TABLET 125 MG US [Suspect]
     Dosage: 62.5 MG, BID
     Route: 048
     Dates: start: 20100915, end: 20100101
  3. BOSENTAN TABLET 125 MG US [Suspect]
     Dosage: 62.5 MG, BID
     Route: 048
     Dates: start: 20101101
  4. DILTIAZEM [Concomitant]
  5. ADVAIR [Concomitant]
  6. LEVOTHYROXINE SODIUM [Concomitant]
  7. PREMARIN [Concomitant]
  8. GABAPENTIN [Concomitant]
  9. SIMVASTATIN [Concomitant]

REACTIONS (2)
  - DYSPNOEA [None]
  - RHINORRHOEA [None]
